FAERS Safety Report 10570723 (Version 1)
Quarter: 2014Q4

REPORT INFORMATION
  Report Type: Spontaneous
  Country: GB (occurrence: None)
  Receive Date: 20141105
  Receipt Date: 20141105
  Transmission Date: 20150529
  Serious: Yes (Death)
  Sender: FDA-Public Use
  Company Number: 2014000062A

PATIENT
  Age: 67 Year
  Sex: Male

DRUGS (4)
  1. TRAMADOL [Concomitant]
     Active Substance: TRAMADOL
  2. OXYCODONE [Suspect]
     Active Substance: OXYCODONE
  3. MORPHINE [Suspect]
     Active Substance: MORPHINE
  4. PROMETHAZINE [Concomitant]
     Active Substance: PROMETHAZINE\PROMETHAZINE HYDROCHLORIDE

REACTIONS (2)
  - Hepatic cirrhosis [None]
  - Toxicity to various agents [None]

NARRATIVE: CASE EVENT DATE: 20100604
